FAERS Safety Report 6678950-5 (Version None)
Quarter: 2010Q2

REPORT INFORMATION
  Report Type: 
  Country: None (occurrence: None)
  Receive Date: 20100413
  Receipt Date: 20100408
  Transmission Date: 20101027
  Serious: Yes (Hospitalization)
  Sender: FDA-Public Use
  Company Number: US-ASTRAZENECA-2010SE15394

PATIENT
  Age: 84 Year
  Sex: Female
  Weight: 59 kg

DRUGS (14)
  1. OMEPRAZOLE [Suspect]
     Route: 048
     Dates: end: 20100318
  2. ULORIC [Suspect]
     Route: 048
  3. AMOXICILLIN [Suspect]
     Dates: end: 20100318
  4. BIAXIN [Suspect]
     Dates: end: 20100318
  5. LIDOCAINE [Concomitant]
  6. TOPROL-XL [Concomitant]
     Route: 048
  7. POTASSIUM [Concomitant]
  8. REGLAN [Concomitant]
  9. MULTI-VITAMIN [Concomitant]
  10. VYTRON C [Concomitant]
  11. VICODIN [Concomitant]
  12. PEPTO-BISMOL [Concomitant]
  13. ZOFRAN [Concomitant]
  14. COLCHICINE [Concomitant]

REACTIONS (3)
  - DEHYDRATION [None]
  - NEUTROPENIA [None]
  - THROMBOCYTOPENIA [None]
